FAERS Safety Report 19489741 (Version 1)
Quarter: 2021Q3

REPORT INFORMATION
  Report Type: Spontaneous
  Country: CN (occurrence: CN)
  Receive Date: 20210704
  Receipt Date: 20210704
  Transmission Date: 20211014
  Serious: Yes (Hospitalization, Other)
  Sender: FDA-Public Use
  Company Number: CN-LUPIN PHARMACEUTICALS INC.-2021-10776

PATIENT
  Age: 69 Year
  Sex: Male

DRUGS (2)
  1. MOXIFLOXACIN HYDROCHLORIDE. [Suspect]
     Active Substance: MOXIFLOXACIN HYDROCHLORIDE
     Indication: COVID-19
     Dosage: UNK
     Route: 065
     Dates: start: 2020
  2. UMIFENOVIR. [Suspect]
     Active Substance: UMIFENOVIR
     Indication: COVID-19
     Dosage: UNK
     Route: 065
     Dates: start: 2020

REACTIONS (2)
  - Pancytopenia [Recovering/Resolving]
  - Off label use [Unknown]

NARRATIVE: CASE EVENT DATE: 2020
